FAERS Safety Report 6547954-5 (Version None)
Quarter: 2010Q1

REPORT INFORMATION
  Report Type: 
  Country: None (occurrence: None)
  Receive Date: 20100124
  Receipt Date: 20091130
  Transmission Date: 20100710
  Serious: No
  Sender: FDA-Public Use
  Company Number: US-ALEXION-A200901026

PATIENT
  Sex: Female

DRUGS (12)
  1. SOLIRIS [Suspect]
     Indication: PAROXYSMAL NOCTURNAL HAEMOGLOBINURIA
     Dosage: 600 MG, QW
     Route: 042
     Dates: start: 20070918, end: 20071009
  2. SOLIRIS [Suspect]
     Dosage: 900 MG, Q2W
     Route: 042
     Dates: start: 20071016, end: 20090101
  3. SOLIRIS [Suspect]
     Dosage: 700 MG, Q2W
     Route: 042
     Dates: start: 20090101, end: 20090101
  4. SOLIRIS [Suspect]
     Dosage: 900 MG, Q2W
     Route: 042
     Dates: start: 20090101
  5. LEXAPRO [Concomitant]
     Dosage: 20 MG, QD
  6. AMBIEN [Concomitant]
     Dosage: 10 MG, QD
  7. ZOFRAN [Concomitant]
     Dosage: UNK
  8. MS CONTIN [Concomitant]
     Dosage: 30 MG, BID
  9. TOPAMAX [Concomitant]
     Indication: MIGRAINE
     Dosage: 50 MG, QD
  10. IMITREX                            /01044801/ [Concomitant]
     Indication: MIGRAINE
     Dosage: 50 MG, PRN
     Route: 048
  11. PROTONIX                           /01263201/ [Concomitant]
     Dosage: 40 MG, QD
     Route: 048
  12. ERRIN [Concomitant]
     Indication: CONTRACEPTION
     Dosage: UNK
     Route: 048

REACTIONS (2)
  - HEADACHE [None]
  - MALAISE [None]
